FAERS Safety Report 6595492-6 (Version None)
Quarter: 2010Q1

REPORT INFORMATION
  Report Type: 
  Country: None (occurrence: None)
  Receive Date: 20100223
  Receipt Date: 20100201
  Transmission Date: 20100710
  Serious: Yes (Other)
  Sender: FDA-Public Use
  Company Number: US-JNJFOC-20100103225

PATIENT
  Age: 71 Year
  Sex: Female
  Weight: 63.05 kg

DRUGS (2)
  1. TYLENOL [Suspect]
     Indication: ARTHRITIS
     Route: 048
  2. TYLENOL [Suspect]
     Route: 048

REACTIONS (2)
  - MELAENA [None]
  - PRODUCT QUALITY ISSUE [None]
